FAERS Safety Report 14128631 (Version 1)
Quarter: 2017Q4

REPORT INFORMATION
  Report Type: Spontaneous
  Country: HK (occurrence: HK)
  Receive Date: 20171026
  Receipt Date: 20171026
  Transmission Date: 20180321
  Serious: Yes (Disabling, Other)
  Sender: FDA-Public Use
  Company Number: HK-BAYER-201046435GPV

PATIENT
  Age: 42 Year
  Sex: Male

DRUGS (1)
  1. BETAFERON [Suspect]
     Active Substance: INTERFERON BETA-1B
     Indication: MULTIPLE SCLEROSIS
     Dosage: 8 MIU, QD
     Dates: start: 2005

REACTIONS (6)
  - Injection site induration [None]
  - Drug dose omission [None]
  - Device use issue [Recovered/Resolved]
  - Blindness unilateral [None]
  - Musculoskeletal disorder [None]
  - Oedema peripheral [Not Recovered/Not Resolved]

NARRATIVE: CASE EVENT DATE: 2009
